FAERS Safety Report 18223839 (Version 1)
Quarter: 2020Q3

REPORT INFORMATION
  Report Type: Spontaneous
  Country: FR (occurrence: FR)
  Receive Date: 20200902
  Receipt Date: 20200902
  Transmission Date: 20201103
  Serious: Yes (Other)
  Sender: FDA-Public Use
  Company Number: FR-EISAI MEDICAL RESEARCH-EC-2020-079332

PATIENT
  Age: 8 Year
  Sex: Female
  Weight: 27 kg

DRUGS (8)
  1. FYCOMPA [Suspect]
     Active Substance: PERAMPANEL
     Indication: EPILEPSY
     Route: 048
     Dates: start: 20180802
  2. SABRIL [Suspect]
     Active Substance: VIGABATRIN
     Indication: EPILEPSY
     Dosage: 500 MG/0/1250 MG
     Route: 048
     Dates: start: 20170815
  3. PRIVIGEN [Suspect]
     Active Substance: HUMAN IMMUNOGLOBULIN G
     Indication: EPILEPSY
     Dosage: 0.3 G/KG
     Route: 041
     Dates: start: 2017
  4. TALOXA [Suspect]
     Active Substance: FELBAMATE
     Indication: EPILEPSY
     Dosage: 4ML/0/5ML
     Route: 048
     Dates: start: 201908
  5. RIXATHON [Suspect]
     Active Substance: RITUXIMAB
     Indication: EPILEPSY
     Route: 041
     Dates: start: 201811
  6. INOVELON [Suspect]
     Active Substance: RUFINAMIDE
     Indication: EPILEPSY
     Dosage: 50MG/0/100MG
     Route: 048
     Dates: start: 201804, end: 202006
  7. BACTRIM ENFANTS [Suspect]
     Active Substance: SULFAMETHOXAZOLE\TRIMETHOPRIM
     Indication: ANTIBIOTIC PROPHYLAXIS
     Route: 048
     Dates: start: 201811
  8. SOLUPRED (PREDNISOLONE METASULFOBENZOATE SODIUM) [Suspect]
     Active Substance: PREDNISOLONE SODIUM METAZOATE
     Indication: PREMEDICATION
     Dosage: DOSE AND FREQUENCY NOT PROVIDED
     Route: 048
     Dates: start: 201811

REACTIONS (1)
  - Precocious puberty [Not Recovered/Not Resolved]

NARRATIVE: CASE EVENT DATE: 202003
